FAERS Safety Report 23977817 (Version 1)
Quarter: 2024Q2

REPORT INFORMATION
  Report Type: Spontaneous
  Country: US (occurrence: US)
  Receive Date: 20240614
  Receipt Date: 20240614
  Transmission Date: 20240716
  Serious: No
  Sender: FDA-Public Use
  Company Number: US-TEVA-VS-3194138

PATIENT
  Age: 71 Year
  Sex: Female

DRUGS (2)
  1. AUSTEDO [Suspect]
     Active Substance: DEUTETRABENAZINE
     Indication: Tardive dyskinesia
     Dosage: 12 MG TABLETS - TAKE TWO TABLETS EVERY NIGHT AT BEDTIME
     Route: 065
  2. PRAZOSIN [Concomitant]
     Active Substance: PRAZOSIN

REACTIONS (3)
  - Off label use [Unknown]
  - Post-traumatic stress disorder [Unknown]
  - Nightmare [Unknown]
